APPROVED DRUG PRODUCT: ALOXI
Active Ingredient: PALONOSETRON HYDROCHLORIDE
Strength: EQ 0.5MG BASE **Federal Register determination that product was not discontinued or withdrawn for safety or effectiveness reasons**
Dosage Form/Route: CAPSULE;ORAL
Application: N022233 | Product #001
Applicant: HELSINN HEALTHCARE SA
Approved: Aug 22, 2008 | RLD: Yes | RS: No | Type: DISCN